FAERS Safety Report 16723617 (Version 2)
Quarter: 2019Q4

REPORT INFORMATION
  Report Type: Spontaneous
  Country: US (occurrence: US)
  Receive Date: 20190821
  Receipt Date: 20191115
  Transmission Date: 20200122
  Serious: Yes (Other)
  Sender: FDA-Public Use
  Company Number: US-009507513-1908USA006055

PATIENT
  Age: 56 Year
  Sex: Male

DRUGS (1)
  1. KEYTRUDA [Suspect]
     Active Substance: PEMBROLIZUMAB
     Indication: SQUAMOUS CELL CARCINOMA OF SKIN
     Dosage: 200 MG WAS GIVEN EVERY 3 WEEKS, NINE INFUSIONS
     Route: 042

REACTIONS (3)
  - Tumour pseudoprogression [Recovered/Resolved]
  - Off label use [Unknown]
  - Immune-mediated adverse reaction [Recovered/Resolved]
